FAERS Safety Report 5799166-0 (Version None)
Quarter: 2008Q3

REPORT INFORMATION
  Report Type: 
  Country: None (occurrence: None)
  Receive Date: 20080701
  Receipt Date: 20080624
  Transmission Date: 20090109
  Serious: Yes (Hospitalization)
  Sender: FDA-Public Use
  Company Number: MEDI-0006912

PATIENT
  Age: 2 Month
  Sex: Male
  Weight: 2.9 kg

DRUGS (1)
  1. SYNAGIS [Suspect]

REACTIONS (4)
  - APNOEA [None]
  - CREPITATIONS [None]
  - INTERCOSTAL RETRACTION [None]
  - RALES [None]
